FAERS Safety Report 6656931-5 (Version None)
Quarter: 2010Q1

REPORT INFORMATION
  Report Type: 
  Country: None (occurrence: None)
  Receive Date: 20100329
  Receipt Date: 20100329
  Transmission Date: 20100710
  Serious: Yes (Other)
  Sender: FDA-Public Use
  Company Number: None

PATIENT
  Age: 47 Year
  Sex: Female
  Weight: 52.1637 kg

DRUGS (1)
  1. HYDROXYCHLOROQUINE SULFATE [Suspect]
     Indication: SYSTEMIC LUPUS ERYTHEMATOSUS
     Dosage: 200 MG 1X DAY PO
     Route: 048
     Dates: start: 20100203, end: 20100328

REACTIONS (8)
  - DIZZINESS [None]
  - EXERCISE TOLERANCE DECREASED [None]
  - FATIGUE [None]
  - HEADACHE [None]
  - MUSCLE FATIGUE [None]
  - NAUSEA [None]
  - PRODUCT QUALITY ISSUE [None]
  - PRODUCT SUBSTITUTION ISSUE [None]
